FAERS Safety Report 14605083 (Version 1)
Quarter: 2018Q1

REPORT INFORMATION
  Report Type: Spontaneous
  Country: US (occurrence: US)
  Receive Date: 20180306
  Receipt Date: 20180306
  Transmission Date: 20180509
  Serious: Yes (Hospitalization)
  Sender: FDA-Public Use
  Company Number: None

PATIENT
  Sex: Male

DRUGS (1)
  1. LYRICA [Suspect]
     Active Substance: PREGABALIN

REACTIONS (5)
  - Pain in extremity [None]
  - Self-injurious ideation [None]
  - Platelet count decreased [None]
  - Sleep disorder [None]
  - Drug ineffective [None]
